FAERS Safety Report 18245271 (Version 3)
Quarter: 2020Q4

REPORT INFORMATION
  Report Type: Spontaneous
  Country: GB (occurrence: GB)
  Receive Date: 20200909
  Receipt Date: 20201023
  Transmission Date: 20210113
  Serious: Yes (Other)
  Sender: FDA-Public Use
  Company Number: GB-ALVOGEN-2020-ALVOGEN-114210

PATIENT
  Age: 88 Year
  Sex: Male

DRUGS (9)
  1. ATORVASTATIN [Suspect]
     Active Substance: ATORVASTATIN
     Indication: PRODUCT USED FOR UNKNOWN INDICATION
     Route: 065
  2. ALLOPURINOL. [Suspect]
     Active Substance: ALLOPURINOL
     Indication: PROSTATE CANCER
     Route: 065
  3. LEUPRORELIN [Suspect]
     Active Substance: LEUPROLIDE ACETATE
     Indication: PULMONARY EMBOLISM
     Route: 065
  4. EDOXABAN [Suspect]
     Active Substance: EDOXABAN TOSYLATE
     Indication: PULMONARY EMBOLISM
     Route: 065
  5. LISINOPRIL. [Suspect]
     Active Substance: LISINOPRIL
     Indication: PROSTATE CANCER
     Route: 048
  6. NYSTATIN. [Suspect]
     Active Substance: NYSTATIN
     Indication: PROSTATE CANCER
     Route: 065
  7. AMLODIPINE [Suspect]
     Active Substance: AMLODIPINE BESYLATE
     Indication: PROSTATE CANCER
     Dosage: UNK
     Route: 065
  8. LUPRON DEPOT [Suspect]
     Active Substance: LEUPROLIDE ACETATE
     Indication: PROSTATE CANCER
     Dosage: UNK
     Route: 065
     Dates: start: 2018
  9. SIMVASTATIN. [Suspect]
     Active Substance: SIMVASTATIN
     Indication: PULMONARY EMBOLISM
     Route: 065

REACTIONS (10)
  - Disease progression [Unknown]
  - Blood urea abnormal [Unknown]
  - Pulmonary embolism [Unknown]
  - Off label use [Unknown]
  - Prostate cancer recurrent [Unknown]
  - Pelvic mass [Unknown]
  - Hydronephrosis [Unknown]
  - Lymphadenopathy [Unknown]
  - Malignant transformation [Unknown]
  - Blood electrolytes abnormal [Unknown]

NARRATIVE: CASE EVENT DATE: 201912
